FAERS Safety Report 23357810 (Version 1)
Quarter: 2024Q1

REPORT INFORMATION
  Report Type: Report from Study
  Country: PH (occurrence: PH)
  Receive Date: 20240102
  Receipt Date: 20240102
  Transmission Date: 20240410
  Serious: Yes (Hospitalization)
  Sender: FDA-Public Use
  Company Number: PH-OTSUKA-2023_033423

PATIENT
  Sex: Female

DRUGS (1)
  1. TOLVAPTAN [Suspect]
     Active Substance: TOLVAPTAN
     Indication: Product used for unknown indication
     Dosage: 0.5 DF, QD
     Route: 065
     Dates: end: 202311

REACTIONS (4)
  - Blood sodium decreased [Unknown]
  - Blood creatinine increased [Unknown]
  - Asthenia [Unknown]
  - Wrong technique in product usage process [Unknown]
